FAERS Safety Report 9456191 (Version 1)
Quarter: 2013Q3

REPORT INFORMATION
  Report Type: Spontaneous
  Country: KR (occurrence: None)
  Receive Date: 20130808
  Receipt Date: 20130808
  Transmission Date: 20140515
  Serious: Yes (Hospitalization, Other)
  Sender: FDA-Public Use
  Company Number: 2013/153

PATIENT
  Age: 6 Month
  Sex: Female

DRUGS (1)
  1. VALPROIC ACID [Suspect]
     Indication: CONVULSION

REACTIONS (4)
  - Petechiae [None]
  - Pancytopenia [None]
  - Hypogammaglobulinaemia [None]
  - Iron deficiency anaemia [None]
